FAERS Safety Report 13776148 (Version 1)
Quarter: 2017Q3

REPORT INFORMATION
  Report Type: Spontaneous
  Country: US (occurrence: US)
  Receive Date: 20170720
  Receipt Date: 20170720
  Transmission Date: 20171127
  Serious: No
  Sender: FDA-Public Use
  Company Number: US-009507513-1707USA003212

PATIENT
  Age: 25 Year
  Sex: Female
  Weight: 55.33 kg

DRUGS (4)
  1. ZOLOFT [Concomitant]
     Active Substance: SERTRALINE HYDROCHLORIDE
  2. NEXPLANON [Suspect]
     Active Substance: ETONOGESTREL
     Indication: CONTRACEPTION
     Dosage: 1 DF, UNK
     Route: 059
     Dates: start: 2014, end: 20170712
  3. NEXPLANON [Suspect]
     Active Substance: ETONOGESTREL
     Dosage: DOSE/FREQUENCY: 3 YEAR IMPLANT, ROUTE:IMPLANT IN LEFT ARM
     Route: 059
     Dates: start: 20170712
  4. LAMICTAL [Concomitant]
     Active Substance: LAMOTRIGINE

REACTIONS (3)
  - Abnormal behaviour [Unknown]
  - Anger [Unknown]
  - Mood altered [Unknown]

NARRATIVE: CASE EVENT DATE: 20170531
